FAERS Safety Report 10866651 (Version 1)
Quarter: 2015Q1

REPORT INFORMATION
  Report Type: Report from Study
  Country: US (occurrence: US)
  Receive Date: 20150225
  Receipt Date: 20150225
  Transmission Date: 20150721
  Serious: Yes (Death, Hospitalization, Other)
  Sender: FDA-Public Use
  Company Number: US-DENDREON CORPORATION-2014SIPUSA00678

PATIENT
  Age: 86 Year
  Sex: Male
  Weight: 61.45 kg

DRUGS (37)
  1. CALCIUM CITRATE WITH VITAMIN D3 [Concomitant]
     Indication: PRODUCT USED FOR UNKNOWN INDICATION
     Dosage: 630MG/400 IU BID
     Route: 048
     Dates: start: 20130618
  2. ALBUTEROL SULFATE. [Concomitant]
     Active Substance: ALBUTEROL SULFATE
     Indication: ASTHMA
     Dosage: 2.5 MG, PRN
     Dates: start: 1980
  3. K PHOS NEUTRAL [Concomitant]
     Active Substance: POTASSIUM PHOSPHATE, MONOBASIC\SODIUM PHOSPHATE, DIBASIC, ANHYDROUS\SODIUM PHOSPHATE, MONOBASIC, MONOHYDRATE
     Dosage: 500 MG, QD
     Route: 048
     Dates: start: 20140407
  4. VENTOLIN HFA [Concomitant]
     Active Substance: ALBUTEROL SULFATE
     Indication: ASTHMA
     Dosage: 90 MCG, PRN
     Dates: start: 1980
  5. K PHOS NEUTRAL [Concomitant]
     Active Substance: POTASSIUM PHOSPHATE, MONOBASIC\SODIUM PHOSPHATE, DIBASIC, ANHYDROUS\SODIUM PHOSPHATE, MONOBASIC, MONOHYDRATE
     Indication: HYPOPHOSPHATAEMIA
     Dosage: 500 MG, QID
     Route: 048
     Dates: start: 20140314, end: 20140320
  6. DEGARELIX [Concomitant]
     Active Substance: DEGARELIX
     Indication: PROSTATE CANCER
     Dosage: UNK
     Route: 058
     Dates: start: 20130514, end: 20140121
  7. OSCAL [Concomitant]
     Active Substance: CALCIUM CARBONATE
     Indication: SUPPLEMENTATION THERAPY
     Dosage: 250 MG/125 MG
     Route: 048
     Dates: start: 20140419, end: 20140429
  8. VITAMIN D3 [Concomitant]
     Active Substance: CHOLECALCIFEROL
     Indication: OSTEOPOROSIS
     Dosage: 5000 UNITS, QD
     Route: 048
     Dates: start: 20130618
  9. LASIX [Concomitant]
     Active Substance: FUROSEMIDE
     Indication: OEDEMA
     Dosage: 20 MG, UNK
     Route: 048
     Dates: start: 20140320, end: 20140323
  10. NORCO [Concomitant]
     Active Substance: ACETAMINOPHEN\HYDROCODONE BITARTRATE
     Indication: PRODUCT USED FOR UNKNOWN INDICATION
     Dosage: 0.5 TO 1 TABLETS EVERY 4 HOURS AS NEEDED FOR PAIN
     Route: 048
  11. XGEVA [Concomitant]
     Active Substance: DENOSUMAB
     Indication: OSTEOPOROSIS
     Dosage: 120 MG, EVERY MONTH
     Route: 058
     Dates: start: 20140122
  12. ELIGARD [Concomitant]
     Active Substance: LEUPROLIDE ACETATE
     Indication: PROSTATE CANCER
     Dosage: 22.5 MG, Q3M
     Route: 058
     Dates: start: 20140122
  13. LIDOCAINE. [Concomitant]
     Active Substance: LIDOCAINE
     Indication: CONTUSION
     Dosage: 1 DF, UNK
     Route: 061
     Dates: start: 20140131
  14. TYLENOL [Concomitant]
     Active Substance: ACETAMINOPHEN
     Indication: PREMEDICATION
     Dosage: 650 MG, QD
     Route: 048
     Dates: start: 20140227, end: 20140227
  15. SIPULEUCEL-T [Suspect]
     Active Substance: SIPULEUCEL-T
     Dosage: 250 ML, SINGLE
     Route: 042
     Dates: start: 20140410, end: 20140410
  16. LASIX [Concomitant]
     Active Substance: FUROSEMIDE
     Dosage: 60 UNK, UNK
     Route: 048
     Dates: start: 20140323, end: 20140323
  17. METFORMIN HCL [Concomitant]
     Active Substance: METFORMIN HYDROCHLORIDE
     Indication: TYPE 2 DIABETES MELLITUS
     Dosage: 850 MG, BID
     Route: 048
     Dates: start: 2005
  18. FLUTICASONE [Concomitant]
     Active Substance: FLUTICASONE\FLUTICASONE PROPIONATE
     Indication: ASTHMA
     Dosage: 50 MCG, PRN
     Dates: start: 1980
  19. MUCINEX [Concomitant]
     Active Substance: GUAIFENESIN
     Indication: CHRONIC OBSTRUCTIVE PULMONARY DISEASE
     Dosage: 1200 MG, BID
     Route: 048
     Dates: start: 1980
  20. SOLU-MEDROL [Concomitant]
     Active Substance: METHYLPREDNISOLONE SODIUM SUCCINATE
     Indication: CONTUSION
     Dosage: 4 MG, QD
     Route: 048
     Dates: start: 20140131, end: 20140203
  21. TYLENOL [Concomitant]
     Active Substance: ACETAMINOPHEN
     Indication: METASTASES TO BONE
     Dosage: 650 MG, PRN
     Route: 048
     Dates: start: 20140211
  22. TYLENOL [Concomitant]
     Active Substance: ACETAMINOPHEN
     Dosage: 650 MG, QD
     Route: 048
     Dates: start: 20140313, end: 20140313
  23. PROVENTIL [Concomitant]
     Active Substance: ALBUTEROL
     Indication: WHEEZING
     Dosage: 2 DF, EVERY HOURS AS NEEDED
  24. TYLENOL [Concomitant]
     Active Substance: ACETAMINOPHEN
     Dosage: 650 MG, QD
     Route: 048
     Dates: start: 20140410, end: 20140410
  25. ALEVE [Concomitant]
     Active Substance: NAPROXEN SODIUM
     Dosage: 440 MG, PRN
     Route: 048
     Dates: start: 20140407
  26. BENADRYL [Concomitant]
     Active Substance: DIPHENHYDRAMINE HYDROCHLORIDE
     Indication: PREMEDICATION
     Dosage: 25 MG, QD
     Route: 048
     Dates: start: 20140227, end: 20140227
  27. SIPULEUCEL-T [Suspect]
     Active Substance: SIPULEUCEL-T
     Indication: PROSTATE CANCER METASTATIC
     Dosage: 250 ML, SINGLE
     Route: 042
     Dates: start: 20140227, end: 20140227
  28. SIPULEUCEL-T [Suspect]
     Active Substance: SIPULEUCEL-T
     Dosage: 250 ML, SINGLE
     Route: 042
     Dates: start: 20140313, end: 20140313
  29. ENZALUTAMIDE [Suspect]
     Active Substance: ENZALUTAMIDE
     Indication: PROSTATE CANCER METASTATIC
     Dosage: 160 MG, QD
     Route: 048
     Dates: start: 20140210, end: 20140210
  30. OXYGEN. [Concomitant]
     Active Substance: OXYGEN
     Indication: DYSPNOEA
     Dosage: 2 L, PRN
     Dates: start: 20140116, end: 20140410
  31. ENZALUTAMIDE [Suspect]
     Active Substance: ENZALUTAMIDE
     Dosage: 160 MG, QD
     Route: 048
     Dates: start: 20140418, end: 20140418
  32. LASIX [Concomitant]
     Active Substance: FUROSEMIDE
     Dosage: 40 UNK, UNK
     Route: 048
     Dates: start: 20140323
  33. TAMSULOSIN [Concomitant]
     Active Substance: TAMSULOSIN
     Indication: PRODUCT USED FOR UNKNOWN INDICATION
  34. SPIRIVA [Concomitant]
     Active Substance: TIOTROPIUM BROMIDE MONOHYDRATE
     Indication: CHRONIC OBSTRUCTIVE PULMONARY DISEASE
     Dosage: 18 MCG, QD
     Dates: start: 1980
  35. IBUPROFEN. [Concomitant]
     Active Substance: IBUPROFEN
     Indication: PAIN IN EXTREMITY
     Dosage: 800 MG, PRN
     Route: 048
     Dates: start: 20140403
  36. OXYGEN. [Concomitant]
     Active Substance: OXYGEN
     Indication: CHRONIC OBSTRUCTIVE PULMONARY DISEASE
     Dosage: 2 L, QD
     Dates: start: 20140410
  37. COLACE [Concomitant]
     Active Substance: DOCUSATE SODIUM
     Indication: CONSTIPATION
     Dosage: 100 MG, BID
     Route: 048
     Dates: start: 2011

REACTIONS (3)
  - Femur fracture [Not Recovered/Not Resolved]
  - Fall [Recovered/Resolved]
  - Respiratory failure [Fatal]

NARRATIVE: CASE EVENT DATE: 20140418
